FAERS Safety Report 20500472 (Version 2)
Quarter: 2022Q2

REPORT INFORMATION
  Report Type: Other
  Country: CA (occurrence: CA)
  Receive Date: 20220222
  Receipt Date: 20220505
  Transmission Date: 20220721
  Serious: Yes (Other)
  Sender: FDA-Public Use
  Company Number: CA-002147023-NVSC2021CA230919

PATIENT
  Age: 40 Year
  Sex: Female

DRUGS (2)
  1. XOLAIR [Suspect]
     Active Substance: OMALIZUMAB
     Indication: Chronic spontaneous urticaria
     Route: 058
     Dates: start: 20210219
  2. XOLAIR [Suspect]
     Active Substance: OMALIZUMAB
     Indication: Colitis ulcerative
     Route: 058

REACTIONS (8)
  - Thyroid cancer [Unknown]
  - Anaphylactic reaction [Unknown]
  - Arthralgia [Unknown]
  - Pulse abnormal [Unknown]
  - Swelling [Unknown]
  - Hypersensitivity [Unknown]
  - Off label use [Unknown]
  - Inappropriate schedule of product administration [Unknown]

NARRATIVE: CASE EVENT DATE: 20211012
